FAERS Safety Report 6541005-4 (Version None)
Quarter: 2010Q1

REPORT INFORMATION
  Report Type: 
  Country: None (occurrence: None)
  Receive Date: 20100118
  Receipt Date: 20100112
  Transmission Date: 20100710
  Serious: Yes (Death)
  Sender: FDA-Public Use
  Company Number: PHHY2008GB29660

PATIENT
  Age: 76 Year
  Sex: Male
  Weight: 70 kg

DRUGS (20)
  1. TERBINAFINE HYDROCHLORIDE [Suspect]
     Indication: FUNGAL INFECTION
     Dosage: 250 MG/DAY
     Route: 048
     Dates: start: 20081001, end: 20081030
  2. AMOXICILLIN [Concomitant]
     Dosage: 500 MG, TID
     Route: 048
     Dates: start: 20080827, end: 20080830
  3. BETNOVATE [Concomitant]
     Dosage: UNK
     Route: 061
     Dates: start: 20080829
  4. CEFOTAXIME [Concomitant]
     Dosage: 2 G, QID
     Route: 042
     Dates: start: 20081101
  5. CEFUROXIME [Concomitant]
     Dosage: 750 MG, TID
     Route: 042
     Dates: start: 20081031, end: 20081101
  6. CLARITHROMYCIN [Concomitant]
     Dosage: 500 MG, BID
     Route: 048
     Dates: start: 20080827, end: 20080830
  7. CLEXANE [Concomitant]
     Dosage: 40 MG, QD
     Route: 058
     Dates: start: 20080827, end: 20080829
  8. CODEINE PHOSPHATE [Concomitant]
     Dosage: 30 MG, QID
     Route: 048
     Dates: start: 20080827, end: 20080830
  9. CYANOCOBALAMIN [Concomitant]
     Dosage: 50 UG, TID
     Route: 048
     Dates: start: 20080828, end: 20080830
  10. FLOXACILLIN SODIUM [Concomitant]
     Dosage: 1 G, QID
     Route: 042
     Dates: start: 20081101, end: 20081104
  11. FLUOXETINE [Concomitant]
     Dosage: 20 MG, QD
     Route: 048
     Dates: start: 20080828, end: 20080830
  12. GLYCOPYRROLATE [Concomitant]
     Dosage: 400 UG, QD
     Route: 042
     Dates: start: 20081105, end: 20081106
  13. HYDROCORTISONE [Concomitant]
     Dosage: 100 MG, TID
     Route: 048
     Dates: start: 20081102, end: 20081106
  14. METOCLOPRAMIDE [Concomitant]
     Dosage: 10 MG, PRN
     Route: 042
     Dates: start: 20081103
  15. MORPHINE [Concomitant]
     Dosage: UNK
     Route: 042
     Dates: start: 20081103, end: 20081106
  16. PARACETAMOL [Concomitant]
     Dosage: 1 G, TID
     Route: 048
     Dates: start: 20080827, end: 20080830
  17. RANITIDINE [Concomitant]
     Dosage: 300 MG, QD
     Route: 048
     Dates: start: 20080829
  18. TERBINAFINE [Concomitant]
     Dosage: 250 MG, UNK
     Route: 048
     Dates: start: 20080801, end: 20080830
  19. TRAMADOL [Concomitant]
     Dosage: 50 MG, QD
     Route: 048
     Dates: start: 20080830
  20. BENZYLPENICILLIN [Concomitant]
     Dosage: 1.2 G, QID
     Route: 042
     Dates: start: 20081104, end: 20081106

REACTIONS (10)
  - BRONCHITIS BACTERIAL [None]
  - BRONCHOPNEUMONIA [None]
  - LOWER RESPIRATORY TRACT INFECTION [None]
  - PLEURAL ADHESION [None]
  - PULMONARY CONGESTION [None]
  - PULMONARY OEDEMA [None]
  - RASH ERYTHEMATOUS [None]
  - RASH MACULAR [None]
  - SKIN DISORDER [None]
  - TOXIC EPIDERMAL NECROLYSIS [None]
